FAERS Safety Report 5651947-X (Version None)
Quarter: 2008Q1

REPORT INFORMATION
  Report Type: 
  Country: None (occurrence: None)
  Receive Date: 20080304
  Receipt Date: 20080220
  Transmission Date: 20080703
  Serious: Yes (Hospitalization, Other)
  Sender: FDA-Public Use
  Company Number: 2007BI021025

PATIENT
  Age: 46 Year
  Sex: Male
  Weight: 140.6151 kg

DRUGS (2)
  1. AVONEX [Suspect]
     Indication: MULTIPLE SCLEROSIS
     Dosage: 30 UG QW IM
     Route: 030
  2. LISINOPRIL [Concomitant]

REACTIONS (4)
  - COLON CANCER [None]
  - GLAUCOMA [None]
  - PRURITUS [None]
  - TYPE 2 DIABETES MELLITUS [None]
